FAERS Safety Report 10028270 (Version 5)
Quarter: 2015Q2

REPORT INFORMATION
  Report Type: Spontaneous
  Country: US (occurrence: US)
  Receive Date: 20140321
  Receipt Date: 20150617
  Transmission Date: 20150821
  Serious: Yes (Hospitalization, Other)
  Sender: FDA-Public Use
  Company Number: US-SANOFI-AVENTIS-2012SA028340

PATIENT
  Age: 66 Year
  Sex: Female
  Weight: 71.88 kg

DRUGS (3)
  1. HEPARIN [Concomitant]
     Active Substance: HEPARIN SODIUM
  2. ASPIRIN. [Concomitant]
     Active Substance: ASPIRIN
  3. PLAVIX [Suspect]
     Active Substance: CLOPIDOGREL BISULFATE
     Indication: PRODUCT USED FOR UNKNOWN INDICATION
     Route: 048
     Dates: start: 20080911, end: 20100415

REACTIONS (3)
  - Gastrointestinal haemorrhage [Unknown]
  - Gastrointestinal ulcer [Unknown]
  - Multiple injuries [Unknown]

NARRATIVE: CASE EVENT DATE: 20100415
